FAERS Safety Report 18203725 (Version 1)
Quarter: 2020Q3

REPORT INFORMATION
  Report Type: Spontaneous
  Country: US (occurrence: US)
  Receive Date: 20200827
  Receipt Date: 20200827
  Transmission Date: 20201103
  Serious: No
  Sender: FDA-Public Use
  Company Number: US-TARO-2020TAR01144

PATIENT

DRUGS (1)
  1. TERBINAFINE CREAM 1% [Suspect]
     Active Substance: TERBINAFINE
     Indication: TINEA INFECTION
     Dosage: UNK
     Route: 065

REACTIONS (1)
  - Drug ineffective [Unknown]
